FAERS Safety Report 11811011 (Version 1)
Quarter: 2015Q4

REPORT INFORMATION
  Report Type: Spontaneous
  Country: US (occurrence: US)
  Receive Date: 20151208
  Receipt Date: 20151208
  Transmission Date: 20160305
  Serious: No
  Sender: FDA-Public Use
  Company Number: US-BAYER-2015-484407

PATIENT
  Age: 86 Year
  Sex: Female
  Weight: 49.43 kg

DRUGS (4)
  1. OXYTROL FOR WOMEN [Suspect]
     Active Substance: OXYBUTYNIN
     Indication: URINARY INCONTINENCE
     Dosage: UNK UNK, PRN
     Route: 061
     Dates: start: 20151104
  2. XARELTO [Concomitant]
     Active Substance: RIVAROXABAN
  3. CREON [AMYLASE,LIPASE,PROTEASE] [Concomitant]
  4. FLECAINIDE [Concomitant]
     Active Substance: FLECAINIDE

REACTIONS (3)
  - Product use issue [None]
  - Product use issue [Not Recovered/Not Resolved]
  - Drug ineffective [None]

NARRATIVE: CASE EVENT DATE: 20151104
